FAERS Safety Report 4538652-8 (Version None)
Quarter: 2004Q4

REPORT INFORMATION
  Report Type: 
  Country: None (occurrence: None)
  Receive Date: 20041223
  Receipt Date: 20041213
  Transmission Date: 20050328
  Serious: Yes (Hospitalization)
  Sender: FDA-Public Use
  Company Number: WAES 0412KOR00011

PATIENT
  Age: 56 Year
  Sex: Male

DRUGS (1)
  1. COZAAR [Suspect]
     Indication: CARDIAC FAILURE
     Route: 048
     Dates: start: 20041022

REACTIONS (3)
  - HAEMOPTYSIS [None]
  - NASOPHARYNGITIS [None]
  - PULMONARY OEDEMA [None]
